FAERS Safety Report 23054895 (Version 2)
Quarter: 2024Q2

REPORT INFORMATION
  Report Type: Report from Study
  Country: ES (occurrence: ES)
  Receive Date: 20231011
  Receipt Date: 20240424
  Transmission Date: 20240715
  Serious: Yes (Other)
  Sender: FDA-Public Use
  Company Number: ES-JNJFOC-20230941143

PATIENT
  Age: 84 Year
  Sex: Male

DRUGS (5)
  1. METHOTREXATE [Suspect]
     Active Substance: METHOTREXATE
     Indication: Psoriatic arthropathy
     Dosage: 15 MILLIGRAM, QW
     Route: 065
  2. METHOTREXATE [Suspect]
     Active Substance: METHOTREXATE
     Indication: Immunosuppressant drug therapy
  3. REMICADE [Suspect]
     Active Substance: INFLIXIMAB
     Indication: Psoriatic arthropathy
     Dosage: 3 MILLIGRAM/KILOGRAM, Q8W
     Route: 042
  4. REMICADE [Suspect]
     Active Substance: INFLIXIMAB
     Indication: Immunosuppressant drug therapy
  5. METHYLPREDNISOLONE [Suspect]
     Active Substance: METHYLPREDNISOLONE
     Indication: Immunosuppressant drug therapy
     Dosage: 4 MILLIGRAM, QD (24 HOURS)
     Route: 065

REACTIONS (2)
  - Alternaria infection [Recovered/Resolved]
  - Off label use [Unknown]
